FAERS Safety Report 7683758-8 (Version None)
Quarter: 2011Q3

REPORT INFORMATION
  Report Type: 
  Country: None (occurrence: None)
  Receive Date: 20110815
  Receipt Date: 20110811
  Transmission Date: 20111222
  Serious: Yes (Other)
  Sender: FDA-Public Use
  Company Number: CO-PFIZER INC-2011186182

PATIENT
  Age: 21 Month
  Sex: Female

DRUGS (2)
  1. LORATADINE [Concomitant]
     Indication: EAR INFECTION
  2. CHILDREN'S ADVIL [Suspect]
     Indication: EAR INFECTION
     Dosage: UNK

REACTIONS (3)
  - HYPERSENSITIVITY [None]
  - DERMATITIS ALLERGIC [None]
  - EYE SWELLING [None]
